FAERS Safety Report 15935930 (Version 2)
Quarter: 2019Q1

REPORT INFORMATION
  Report Type: Spontaneous
  Country: RO (occurrence: RO)
  Receive Date: 20190208
  Receipt Date: 20190221
  Transmission Date: 20190417
  Serious: Yes (Death, Other)
  Sender: FDA-Public Use
  Company Number: RO-AMGEN-ROUSP2019019433

PATIENT
  Age: 65 Year
  Sex: Male
  Weight: 70 kg

DRUGS (1)
  1. ENBREL [Suspect]
     Active Substance: ETANERCEPT
     Indication: PSORIATIC ARTHROPATHY
     Dosage: UNK
     Route: 065
     Dates: start: 2011

REACTIONS (4)
  - Fall [Fatal]
  - Quadriparesis [Fatal]
  - Cervical vertebral fracture [Fatal]
  - Injury [Fatal]

NARRATIVE: CASE EVENT DATE: 201812
